FAERS Safety Report 21272063 (Version 1)
Quarter: 2022Q3

REPORT INFORMATION
  Report Type: Spontaneous
  Country: AU (occurrence: AU)
  Receive Date: 20220830
  Receipt Date: 20220830
  Transmission Date: 20221027
  Serious: Yes (Other)
  Sender: FDA-Public Use
  Company Number: AU-NOVARTISPH-NVSC2022AU193704

PATIENT
  Age: 71 Year
  Sex: Female

DRUGS (2)
  1. GEMCITABINE [Suspect]
     Active Substance: GEMCITABINE
     Indication: Bladder transitional cell carcinoma
     Dosage: 1G, 6-WEEKLY INDUCTION INSTILLATIONS
     Route: 043
  2. DOCETAXEL [Suspect]
     Active Substance: DOCETAXEL
     Indication: Bladder transitional cell carcinoma
     Dosage: 37.5 MG, 6-WEEKLY INDUCTION INSTILLATIONS
     Route: 043

REACTIONS (7)
  - Lymphadenopathy [Unknown]
  - Adnexa uteri mass [Unknown]
  - Drug ineffective [Unknown]
  - Pollakiuria [Unknown]
  - Micturition urgency [Unknown]
  - Off label use [Unknown]
  - Product use in unapproved indication [Unknown]
